FAERS Safety Report 10050615 (Version 1)
Quarter: 2014Q2

REPORT INFORMATION
  Report Type: Spontaneous
  Country: US (occurrence: US)
  Receive Date: 20140401
  Receipt Date: 20140401
  Transmission Date: 20141212
  Serious: No
  Sender: FDA-Public Use
  Company Number: US-ASTRAZENECA-2013SE65638

PATIENT
  Age: 56 Year
  Sex: Female
  Weight: 68.9 kg

DRUGS (2)
  1. NEXIUM [Suspect]
     Indication: GASTROOESOPHAGEAL REFLUX DISEASE
     Route: 048
     Dates: start: 201205
  2. NEXIUM [Suspect]
     Indication: GASTROOESOPHAGEAL REFLUX DISEASE
     Dosage: ONE DF, EVERY OTHER DAY
     Route: 048
     Dates: start: 201205, end: 201303

REACTIONS (5)
  - Adverse event [Unknown]
  - Dysphagia [Unknown]
  - Insomnia [Unknown]
  - Intentional product misuse [Unknown]
  - Drug dose omission [Unknown]
